FAERS Safety Report 16815772 (Version 1)
Quarter: 2019Q3

REPORT INFORMATION
  Report Type: Spontaneous
  Country: DE (occurrence: DE)
  Receive Date: 20190917
  Receipt Date: 20190917
  Transmission Date: 20191005
  Serious: Yes (Other)
  Sender: FDA-Public Use
  Company Number: DE-ASTRAZENECA-2019SF29234

PATIENT
  Sex: Female

DRUGS (8)
  1. SYMBICORT [Suspect]
     Active Substance: BUDESONIDE\FORMOTEROL FUMARATE DIHYDRATE
     Indication: ASTHMA
     Dosage: 160.0 / 4.5 UG, UNKNOWN UNKNOWN
     Route: 055
  2. CANDESARTAN. [Concomitant]
     Active Substance: CANDESARTAN
     Dates: start: 2017
  3. NOVAMINSULFON [Concomitant]
     Active Substance: METAMIZOLE
     Dates: start: 2017
  4. CITALOPRAM [Concomitant]
     Active Substance: CITALOPRAM HYDROBROMIDE
     Dates: start: 2017
  5. TIMONIL [Concomitant]
     Active Substance: CARBAMAZEPINE
     Dosage: 300 RETARD
     Dates: start: 2017
  6. BUDESONIDE. [Concomitant]
     Active Substance: BUDESONIDE
     Dates: start: 2017
  7. FRISIUM [Concomitant]
     Active Substance: CLOBAZAM
     Dates: start: 2017
  8. LEVITERAZETAM [Concomitant]
     Dates: start: 2017

REACTIONS (2)
  - Contusion [Unknown]
  - Haemorrhage [Unknown]
